FAERS Safety Report 8804494 (Version 2)
Quarter: 2015Q1

REPORT INFORMATION
  Report Type: Report from Study
  Country: US (occurrence: US)
  Receive Date: 20120924
  Receipt Date: 20150304
  Transmission Date: 20150721
  Serious: Yes (Other)
  Sender: FDA-Public Use
  Company Number: US-ROCHE-1104453

PATIENT
  Sex: Female
  Weight: 75 kg

DRUGS (19)
  1. ABRAXANE [Concomitant]
     Active Substance: PACLITAXEL
     Route: 065
  2. ABRAXANE [Concomitant]
     Active Substance: PACLITAXEL
     Route: 065
  3. ALOXI [Concomitant]
     Active Substance: PALONOSETRON HYDROCHLORIDE
     Route: 042
  4. ABRAXANE [Concomitant]
     Active Substance: PACLITAXEL
     Route: 065
  5. NEULASTA [Concomitant]
     Active Substance: PEGFILGRASTIM
     Route: 058
  6. ZOMETA [Concomitant]
     Active Substance: ZOLEDRONIC ACID
     Route: 065
  7. AVASTIN [Suspect]
     Active Substance: BEVACIZUMAB
     Route: 042
     Dates: start: 20060420
  8. ABRAXANE [Concomitant]
     Active Substance: PACLITAXEL
     Route: 065
  9. ABRAXANE [Concomitant]
     Active Substance: PACLITAXEL
     Route: 065
  10. AVASTIN [Suspect]
     Active Substance: BEVACIZUMAB
     Route: 042
     Dates: start: 20051122
  11. NEURONTIN [Concomitant]
     Active Substance: GABAPENTIN
  12. LISINOPRIL. [Concomitant]
     Active Substance: LISINOPRIL
  13. ZOMETA [Concomitant]
     Active Substance: ZOLEDRONIC ACID
     Route: 065
  14. AVASTIN [Suspect]
     Active Substance: BEVACIZUMAB
     Indication: BREAST CANCER FEMALE
     Route: 042
     Dates: start: 20051122
  15. ARANESP [Concomitant]
     Active Substance: DARBEPOETIN ALFA
     Route: 042
  16. ARANESP [Concomitant]
     Active Substance: DARBEPOETIN ALFA
     Route: 042
  17. AVASTIN [Suspect]
     Active Substance: BEVACIZUMAB
     Route: 042
     Dates: start: 20051122
  18. ZOMETA [Concomitant]
     Active Substance: ZOLEDRONIC ACID
     Route: 065
  19. NEUPOGEN [Concomitant]
     Active Substance: FILGRASTIM
     Route: 058

REACTIONS (9)
  - Pain [Unknown]
  - Peripheral swelling [Unknown]
  - Disease progression [Unknown]
  - Hypertension [Unknown]
  - Off label use [Unknown]
  - Protein urine present [Recovering/Resolving]
  - Fatigue [Unknown]
  - Hypotension [Unknown]
  - Neuropathy peripheral [Unknown]
